FAERS Safety Report 12904117 (Version 1)
Quarter: 2016Q4

REPORT INFORMATION
  Report Type: Spontaneous
  Country: US (occurrence: US)
  Receive Date: 20161101
  Receipt Date: 20161101
  Transmission Date: 20170207
  Serious: Yes (Death)
  Sender: FDA-Public Use
  Company Number: None

PATIENT
  Age: 58 Year
  Sex: Male
  Weight: 68.4 kg

DRUGS (8)
  1. RITUXIMAB (MOAB C2B8 ANTI CD20, CHIMERIC) [Suspect]
     Active Substance: RITUXIMAB
     Dates: end: 20130426
  2. VINCRISTINE SULFATE. [Suspect]
     Active Substance: VINCRISTINE SULFATE
     Dates: end: 20130429
  3. PREDNISONE. [Suspect]
     Active Substance: PREDNISONE
     Dates: end: 20130430
  4. FLUORINE-18 2-FLUORO-2-DEOXY-D-GLUCOSE (18F-FDG) [Suspect]
     Active Substance: FLUDEOXYGLUCOSE F-18
     Dates: end: 20130510
  5. METHOTREXATE. [Suspect]
     Active Substance: METHOTREXATE
     Dates: end: 20130724
  6. ETOPOSIDE (VP-16) [Suspect]
     Active Substance: ETOPOSIDE
     Dates: end: 20160429
  7. DOXORUBICIN HYDROCHLORIDE. [Suspect]
     Active Substance: DOXORUBICIN HYDROCHLORIDE
     Dates: end: 20130429
  8. CYCLOPHOSPHAMIDE. [Suspect]
     Active Substance: CYCLOPHOSPHAMIDE
     Dates: end: 20130430

REACTIONS (3)
  - Malignant neoplasm progression [None]
  - Thrombocytopenia [None]
  - Bone marrow toxicity [None]

NARRATIVE: CASE EVENT DATE: 20131210
